FAERS Safety Report 6789813-9 (Version None)
Quarter: 2010Q2

REPORT INFORMATION
  Report Type: 
  Country: None (occurrence: None)
  Receive Date: 20100624
  Receipt Date: 20100610
  Transmission Date: 20101027
  Serious: Yes (Other)
  Sender: FDA-Public Use
  Company Number: PHBS2007BR10224

PATIENT
  Sex: Female
  Weight: 104 kg

DRUGS (2)
  1. VISKEN [Suspect]
     Indication: HYPERTENSION
     Dosage: 10 MG, ONCE/SINGLE
     Route: 048
     Dates: start: 20070612, end: 20070612
  2. VITAMINS [Concomitant]

REACTIONS (6)
  - BLOOD PRESSURE INCREASED [None]
  - DRUG EXPOSURE DURING PREGNANCY [None]
  - MALAISE [None]
  - SUFFOCATION FEELING [None]
  - TACHYCARDIA [None]
  - TREMOR [None]
